FAERS Safety Report 6613479-1 (Version None)
Quarter: 2010Q1

REPORT INFORMATION
  Report Type: 
  Country: None (occurrence: None)
  Receive Date: 20100304
  Receipt Date: 20100222
  Transmission Date: 20100710
  Serious: Yes (Death, Other)
  Sender: FDA-Public Use
  Company Number: JP-JNJFOC-20091207212

PATIENT
  Age: 58 Year
  Sex: Female
  Weight: 58 kg

DRUGS (16)
  1. DOXORUBICIN HCL [Suspect]
     Indication: OVARIAN CANCER RECURRENT
     Route: 042
  2. DOXORUBICIN HCL [Suspect]
     Route: 042
  3. ROHYPNOL [Concomitant]
     Route: 048
  4. DORAL [Concomitant]
     Route: 048
  5. DESYREL [Concomitant]
     Route: 048
  6. LEXOTAN [Concomitant]
     Route: 048
  7. GASTER [Concomitant]
     Indication: PROPHYLAXIS
     Route: 048
  8. MOBIC [Concomitant]
     Route: 048
  9. LASIX [Concomitant]
     Route: 048
  10. OXYCONTIN [Concomitant]
     Route: 048
  11. LOXONIN [Concomitant]
     Route: 048
  12. AMINOFLUID [Concomitant]
     Route: 042
  13. AMINOLEBAN [Concomitant]
     Route: 042
  14. DIOVAN [Concomitant]
     Route: 048
  15. METHYCOBAL [Concomitant]
     Route: 048
  16. NOVAMIN [Concomitant]
     Route: 048

REACTIONS (2)
  - OVARIAN CANCER [None]
  - RENAL IMPAIRMENT [None]
